FAERS Safety Report 6414810-2 (Version None)
Quarter: 2009Q4

REPORT INFORMATION
  Report Type: 
  Country: None (occurrence: None)
  Receive Date: 20091026
  Receipt Date: 20091026
  Transmission Date: 20100525
  Serious: No
  Sender: FDA-Public Use
  Company Number: None

PATIENT
  Age: 42 Year
  Weight: 65.7716 kg

DRUGS (1)
  1. MIRENA [Suspect]
     Indication: CONTRACEPTION
     Dosage: INTERUTERINE
     Route: 015
     Dates: start: 20080219, end: 20091025

REACTIONS (3)
  - ANGINA PECTORIS [None]
  - CHEST PAIN [None]
  - MIDDLE INSOMNIA [None]
